FAERS Safety Report 7202800-1 (Version None)
Quarter: 2010Q4

REPORT INFORMATION
  Report Type: 
  Country: None (occurrence: None)
  Receive Date: 20101229
  Receipt Date: 20101118
  Transmission Date: 20110411
  Serious: No
  Sender: FDA-Public Use
  Company Number: US-BAUSCH-2010BL006621

PATIENT
  Age: 70 Year
  Sex: Male

DRUGS (2)
  1. BESIVANCE [Suspect]
     Indication: SUPERFICIAL INJURY OF EYE
     Route: 047
     Dates: start: 20101116
  2. BESIVANCE [Suspect]
     Indication: OFF LABEL USE
     Route: 047
     Dates: start: 20101116

REACTIONS (1)
  - VISION BLURRED [None]
